FAERS Safety Report 8818771 (Version 1)
Quarter: 2012Q4

REPORT INFORMATION
  Report Type: 
  Country: US (occurrence: US)
  Receive Date: 20121001
  Receipt Date: 20121001
  Transmission Date: 20130627
  Serious: Yes (Death)
  Sender: FDA-Public Use
  Company Number: US-ROCHE-1124318

PATIENT
  Sex: Female

DRUGS (11)
  1. HERCEPTIN [Suspect]
     Indication: BREAST CANCER
     Route: 065
     Dates: start: 19981230
  2. TAXOL [Concomitant]
     Route: 065
     Dates: start: 19990202
  3. BENADRYL [Concomitant]
     Route: 065
     Dates: start: 19981230
  4. BENADRYL [Concomitant]
     Route: 065
     Dates: start: 19990106
  5. BENADRYL [Concomitant]
     Route: 065
     Dates: start: 19990202
  6. PEPCID [Concomitant]
     Route: 065
     Dates: start: 19981230
  7. PEPCID [Concomitant]
     Route: 065
     Dates: start: 19990106
  8. PEPCID [Concomitant]
     Route: 065
     Dates: start: 19990202
  9. DECADRON [Concomitant]
     Route: 065
     Dates: start: 19990202
  10. KYTRIL [Concomitant]
     Route: 065
     Dates: start: 19990202
  11. VICODIN [Concomitant]
     Route: 065
     Dates: start: 19981230

REACTIONS (2)
  - Breast cancer [Fatal]
  - Back pain [Unknown]
